FAERS Safety Report 10220114 (Version 1)
Quarter: 2014Q2

REPORT INFORMATION
  Report Type: Spontaneous
  Country: CA (occurrence: CA)
  Receive Date: 20140605
  Receipt Date: 20140605
  Transmission Date: 20141212
  Serious: Yes (Hospitalization)
  Sender: FDA-Public Use
  Company Number: PHHY2014CA065639

PATIENT
  Age: 52 Year
  Sex: Female
  Weight: 45 kg

DRUGS (10)
  1. MIDAZOLAM [Suspect]
     Dosage: 1 MG, UNK
     Route: 042
  2. PROPOFOL [Suspect]
     Dosage: 150 MG, UNK
  3. FENTANYL CITRATE [Suspect]
     Dosage: 150 UG, UNK
     Route: 008
  4. ROCURONIUM BROMIDE [Suspect]
     Dosage: 50 MG, UNK
  5. VANCOMYCIN [Suspect]
     Dosage: 1 G, UNK
     Route: 061
  6. REMIFENTANIL [Suspect]
     Dosage: 0.06 UG/KG, QN
     Route: 042
  7. SUPRANE [Suspect]
  8. ANTIINFECTIVES FOR SYSTEMIC USE [Concomitant]
  9. DEXAMETHASONE [Concomitant]
  10. VASOPRESSIN INJECTION [Concomitant]

REACTIONS (3)
  - Anaphylactoid reaction [Recovered/Resolved]
  - Circulatory collapse [Recovered/Resolved]
  - Off label use [Recovered/Resolved]
